FAERS Safety Report 12287599 (Version 4)
Quarter: 2019Q1

REPORT INFORMATION
  Report Type: Spontaneous
  Country: ES (occurrence: ES)
  Receive Date: 20160420
  Receipt Date: 20190218
  Transmission Date: 20190417
  Serious: Yes (Other)
  Sender: FDA-Public Use
  Company Number: ES-SA-2016SA078128

PATIENT
  Sex: Male

DRUGS (2)
  1. RENAGEL [Suspect]
     Active Substance: SEVELAMER HYDROCHLORIDE
     Dosage: 5 DF,UNK
     Route: 065
     Dates: start: 201603
  2. RENAGEL [Suspect]
     Active Substance: SEVELAMER HYDROCHLORIDE
     Indication: HYPERPHOSPHATAEMIA
     Dosage: 10 DF,QD
     Route: 065
     Dates: end: 201603

REACTIONS (4)
  - Gastrointestinal haemorrhage [Recovered/Resolved]
  - Crystal deposit intestine [Unknown]
  - Pseudopolyposis [Unknown]
  - Colitis [Unknown]

NARRATIVE: CASE EVENT DATE: 2014
